FAERS Safety Report 7046072-X (Version None)
Quarter: 2010Q4

REPORT INFORMATION
  Report Type: 
  Country: None (occurrence: None)
  Receive Date: 20101014
  Receipt Date: 20101001
  Transmission Date: 20110411
  Serious: Yes (Hospitalization)
  Sender: FDA-Public Use
  Company Number: DE-MYLANLABS-2010S1014719

PATIENT
  Age: 77 Year
  Sex: Male

DRUGS (6)
  1. TRAMADOL HCL [Suspect]
     Indication: BACK PAIN
     Route: 048
     Dates: start: 20100201
  2. TORASEMID [Interacting]
     Indication: HYPERTENSION
     Route: 048
     Dates: start: 20080101, end: 20100630
  3. PANTOPRAZOLE SODIUM [Concomitant]
     Indication: PROPHYLAXIS AGAINST GASTROINTESTINAL ULCER
     Route: 048
     Dates: start: 20080101
  4. MIRTAZAPIN [Concomitant]
     Indication: DEPRESSION
     Route: 048
     Dates: start: 20080101
  5. METAMIZOL /06276702/ [Concomitant]
     Indication: PAIN
     Route: 048
     Dates: start: 20100501
  6. FOLSAN [Concomitant]
     Indication: FOLATE DEFICIENCY
     Route: 048
     Dates: start: 20100501

REACTIONS (2)
  - CONSTIPATION [None]
  - HYPOKALAEMIA [None]
